FAERS Safety Report 9720950 (Version 3)
Quarter: 2013Q4

REPORT INFORMATION
  Report Type: Spontaneous
  Country: JP (occurrence: JP)
  Receive Date: 20131129
  Receipt Date: 20131206
  Transmission Date: 20140711
  Serious: No
  Sender: FDA-Public Use
  Company Number: JP-SA-2013SA112157

PATIENT
  Age: 75 Year
  Sex: Female

DRUGS (8)
  1. MYSLEE [Suspect]
     Indication: INSOMNIA
     Route: 048
     Dates: start: 20090807, end: 20130312
  2. MYSLEE [Suspect]
     Indication: INSOMNIA
     Route: 048
     Dates: start: 20130313
  3. BONOTEO [Suspect]
     Indication: OSTEOPOROSIS
     Route: 048
     Dates: start: 20130927, end: 20130927
  4. LYRICA [Concomitant]
     Indication: PAIN
     Dates: start: 20120221
  5. NICORANDIL [Concomitant]
     Indication: ANGINA PECTORIS
     Dates: start: 20081208
  6. METHYCOBAL [Concomitant]
     Indication: NEUROPATHY PERIPHERAL
     Dates: start: 20040910
  7. ESOMEPRAZOLE MAGNESIUM [Concomitant]
     Indication: GASTROOESOPHAGEAL REFLUX DISEASE
     Dates: start: 20120119
  8. ADDERALL [Concomitant]
     Indication: OSTEOPOROSIS
     Dates: start: 20130605

REACTIONS (1)
  - Musculoskeletal stiffness [Recovering/Resolving]
